FAERS Safety Report 14213338 (Version 2)
Quarter: 2018Q1

REPORT INFORMATION
  Report Type: Spontaneous
  Country: RS (occurrence: RS)
  Receive Date: 20171122
  Receipt Date: 20180316
  Transmission Date: 20180508
  Serious: Yes (Hospitalization)
  Sender: FDA-Public Use
  Company Number: RS-NOVOPROD-572646

PATIENT
  Age: 12 Year
  Sex: Male

DRUGS (2)
  1. INSULATARD NPH HUMAN [Suspect]
     Active Substance: INSULIN HUMAN
     Indication: TYPE 1 DIABETES MELLITUS
     Dosage: 5 IU
     Route: 065
     Dates: start: 20170714
  2. INSULATARD NPH HUMAN [Suspect]
     Active Substance: INSULIN HUMAN
     Dosage: 2 DOSES (MORNING 4-5J.+0J.+EVENING 2-3J.)
     Route: 065
     Dates: start: 20170930

REACTIONS (2)
  - Injection site reaction [Recovered/Resolved]
  - Urticaria [Recovered/Resolved]

NARRATIVE: CASE EVENT DATE: 20171007
